FAERS Safety Report 11888766 (Version 1)
Quarter: 2016Q1

REPORT INFORMATION
  Report Type: Spontaneous
  Country: JP (occurrence: JP)
  Receive Date: 20160105
  Receipt Date: 20160105
  Transmission Date: 20160526
  Serious: Yes (Hospitalization)
  Sender: FDA-Public Use
  Company Number: JP-PFIZER INC-2015429235

PATIENT
  Age: 81 Year
  Sex: Female

DRUGS (5)
  1. C-PARA [Concomitant]
     Dosage: 2 ML, 1X/DAY
     Route: 042
     Dates: start: 20151128, end: 20151207
  2. ZOSYN [Suspect]
     Active Substance: PIPERACILLIN SODIUM\TAZOBACTAM SODIUM
     Indication: PNEUMONIA
     Dosage: 2.25 G, 3X/DAY
     Route: 042
     Dates: start: 20151127, end: 20151130
  3. SERENACE [Concomitant]
     Active Substance: HALOPERIDOL
     Dosage: UNK
     Route: 042
     Dates: start: 20151128
  4. GLUCOSE [Concomitant]
     Active Substance: DEXTROSE
     Dosage: 40 ML, 1X/DAY
     Route: 042
     Dates: start: 20151127, end: 20151207
  5. QUETIAPINE FUMARATE. [Concomitant]
     Active Substance: QUETIAPINE FUMARATE
     Dosage: UNK
     Route: 048
     Dates: start: 20151127

REACTIONS (1)
  - Amylase increased [Recovering/Resolving]

NARRATIVE: CASE EVENT DATE: 20151130
